FAERS Safety Report 25073839 (Version 1)
Quarter: 2025Q1

REPORT INFORMATION
  Report Type: Spontaneous
  Country: RU (occurrence: RU)
  Receive Date: 20250313
  Receipt Date: 20250313
  Transmission Date: 20250409
  Serious: Yes (Hospitalization, Other)
  Sender: AMERICAN REGENT
  Company Number: RU-AMERICAN REGENT INC-2025001028

PATIENT
  Age: 45 Year
  Sex: Female
  Weight: 58.5 kg

DRUGS (1)
  1. FERINJECT [Suspect]
     Active Substance: FERRIC CARBOXYMALTOSE
     Indication: Iron deficiency anaemia
     Route: 041
     Dates: start: 20250210, end: 20250210

REACTIONS (2)
  - Product preparation issue [Recovering/Resolving]
  - Angioedema [Recovering/Resolving]

NARRATIVE: CASE EVENT DATE: 20250220
